FAERS Safety Report 9436229 (Version 2)
Quarter: 2013Q3

REPORT INFORMATION
  Report Type: Spontaneous
  Country: BR (occurrence: BR)
  Receive Date: 20130801
  Receipt Date: 20130807
  Transmission Date: 20140515
  Serious: Yes (Other)
  Sender: FDA-Public Use
  Company Number: BR-ABBOTT-13X-020-1125907-00

PATIENT
  Sex: Male
  Weight: 72 kg

DRUGS (2)
  1. DEPAKENE [Suspect]
     Indication: PRODUCT USED FOR UNKNOWN INDICATION
     Dosage: 250 MG, 1 CAPSULE AT NIGHT
     Route: 048
     Dates: start: 2012
  2. HIDANTAL [Concomitant]
     Indication: CONVULSION
     Dosage: 300 MILLIGRAM PER NIGHT
     Route: 048

REACTIONS (9)
  - Convulsion [Recovered/Resolved]
  - Product taste abnormal [Unknown]
  - Tic [Not Recovered/Not Resolved]
  - Hyperreflexia [Not Recovered/Not Resolved]
  - Drug ineffective [Unknown]
  - Blood pressure fluctuation [Unknown]
  - Petit mal epilepsy [Unknown]
  - Memory impairment [Unknown]
  - Product physical issue [Unknown]
